FAERS Safety Report 6556708-5 (Version None)
Quarter: 2010Q1

REPORT INFORMATION
  Report Type: 
  Country: None (occurrence: None)
  Receive Date: 20100128
  Receipt Date: 20100121
  Transmission Date: 20100710
  Serious: Yes (Other)
  Sender: FDA-Public Use
  Company Number: US-SP-2009-03881

PATIENT
  Age: 57 Year
  Sex: Female

DRUGS (6)
  1. IMOVAX RABIES I.D. [Suspect]
     Indication: ANIMAL BITE
     Route: 065
     Dates: start: 20081219, end: 20081219
  2. IMMUNE GLOBULIN (HUMAN) [Suspect]
     Indication: ANIMAL BITE
     Route: 065
     Dates: start: 20081219, end: 20081219
  3. MOTRIN [Concomitant]
  4. ASPIRIN [Concomitant]
  5. TYLENOL-500 [Concomitant]
  6. ANTIBIOTICS [Concomitant]

REACTIONS (6)
  - CARDIOMYOPATHY [None]
  - DIZZINESS [None]
  - HEADACHE [None]
  - HEART RATE INCREASED [None]
  - HYPERHIDROSIS [None]
  - NAUSEA [None]
